FAERS Safety Report 22631248 (Version 1)
Quarter: 2023Q2

REPORT INFORMATION
  Report Type: Report from Study
  Country: US (occurrence: US)
  Receive Date: 20230623
  Receipt Date: 20230623
  Transmission Date: 20230722
  Serious: Yes (Hospitalization)
  Sender: FDA-Public Use
  Company Number: US-ABBVIE-5300598

PATIENT
  Sex: Male

DRUGS (1)
  1. HUMIRA [Suspect]
     Active Substance: ADALIMUMAB
     Indication: Rheumatoid arthritis
     Dosage: CITRATE FREE,FIRST ADMIN DATE?23 MAR 2023
     Route: 058

REACTIONS (5)
  - Skin weeping [Recovering/Resolving]
  - Skin laceration [Recovering/Resolving]
  - Arthropod bite [Recovering/Resolving]
  - Cellulitis [Recovering/Resolving]
  - Wound infection [Recovering/Resolving]

NARRATIVE: CASE EVENT DATE: 20230101
